APPROVED DRUG PRODUCT: ESTROPIPATE
Active Ingredient: ESTROPIPATE
Strength: 3MG
Dosage Form/Route: TABLET;ORAL
Application: A081215 | Product #001
Applicant: WATSON LABORATORIES INC AN INDIRECT WHOLLY OWNED SUB OF TEVA PHARMACEUTICALS USA INC
Approved: Sep 23, 1993 | RLD: No | RS: No | Type: DISCN